FAERS Safety Report 8980035 (Version 1)
Quarter: 2012Q4

REPORT INFORMATION
  Report Type: 
  Country: US (occurrence: US)
  Receive Date: 20121221
  Receipt Date: 20121221
  Transmission Date: 20130627
  Serious: Yes (Other)
  Sender: FDA-Public Use
  Company Number: PHHY2012US115396

PATIENT
  Age: 70 Year
  Sex: Female

DRUGS (5)
  1. BUFFERIN REGULAR STRENGTH [Suspect]
     Indication: PAIN
     Dosage: 1.5 DF, UNK
     Route: 048
     Dates: start: 1980
  2. BUFFERIN REGULAR STRENGTH [Suspect]
     Indication: ANTICOAGULANT THERAPY
     Dosage: 3 UNK, UNK
     Route: 048
     Dates: end: 20121211
  3. BUFFERIN EXTRA STRENGTH [Suspect]
     Indication: FIBROMYALGIA
     Dosage: 1 DF, QD
     Route: 048
     Dates: start: 1980, end: 20121211
  4. BUFFERIN EXTRA STRENGTH [Suspect]
     Indication: ANTICOAGULANT THERAPY
  5. ULTRAM [Concomitant]
     Indication: FIBROMYALGIA
     Dosage: UNK UKN, UNK

REACTIONS (4)
  - Paralysis [Recovered/Resolved]
  - Gastrointestinal disorder [Not Recovered/Not Resolved]
  - Incorrect drug administration duration [Unknown]
  - Expired drug administered [Unknown]
